FAERS Safety Report 14596163 (Version 1)
Quarter: 2018Q1

REPORT INFORMATION
  Report Type: Spontaneous
  Country: SI (occurrence: SI)
  Receive Date: 20180303
  Receipt Date: 20180303
  Transmission Date: 20180509
  Serious: Yes (Death, Other)
  Sender: FDA-Public Use
  Company Number: SI-AMGEN-SVNSP2018026904

PATIENT
  Age: 74 Year
  Sex: Male

DRUGS (6)
  1. BICALUTAMIDE. [Concomitant]
     Active Substance: BICALUTAMIDE
     Dosage: UNK
     Dates: start: 2016
  2. PAMORELIN [Concomitant]
     Active Substance: TRIPTORELIN PAMOATE
  3. XGEVA [Suspect]
     Active Substance: DENOSUMAB
     Indication: PROSTATE CANCER
     Dosage: UNK
     Route: 065
  4. FIRMAGON [Concomitant]
     Active Substance: DEGARELIX ACETATE
     Indication: PROSTATE CANCER
  5. XTANDI [Concomitant]
     Active Substance: ENZALUTAMIDE
  6. DOCETAXEL. [Concomitant]
     Active Substance: DOCETAXEL
     Dosage: UNK
     Dates: start: 2016

REACTIONS (13)
  - Kidney enlargement [Unknown]
  - General physical health deterioration [Unknown]
  - Living in residential institution [Unknown]
  - Metastases to bone [Unknown]
  - Lymphadenopathy [Recovered/Resolved]
  - Neutropenia [Unknown]
  - Anaemia [Unknown]
  - Inflammation [Unknown]
  - Bone pain [Recovering/Resolving]
  - Vitamin D decreased [Unknown]
  - Death [Fatal]
  - Cachexia [Unknown]
  - Hypocalcaemia [Unknown]

NARRATIVE: CASE EVENT DATE: 201608
